FAERS Safety Report 15213993 (Version 2)
Quarter: 2018Q3

REPORT INFORMATION
  Report Type: Report from Study
  Country: None (occurrence: US)
  Receive Date: 20180730
  Receipt Date: 20180825
  Transmission Date: 20181010
  Serious: Yes (Other)
  Sender: FDA-Public Use
  Company Number: US-ABBVIE-18K-163-2347243-00

PATIENT
  Age: 48 Year
  Sex: Female

DRUGS (1)
  1. HUMIRA [Suspect]
     Active Substance: ADALIMUMAB
     Indication: RHEUMATOID ARTHRITIS
     Route: 058
     Dates: end: 20180625

REACTIONS (9)
  - Rheumatoid arthritis [Unknown]
  - Hypersensitivity [Unknown]
  - Sensitivity to weather change [Unknown]
  - Respiratory tract congestion [Unknown]
  - Uveitis [Recovering/Resolving]
  - Nasopharyngitis [Unknown]
  - Intraocular pressure increased [Unknown]
  - Uterine neoplasm [Unknown]
  - Iritis [Unknown]

NARRATIVE: CASE EVENT DATE: 2018
